FAERS Safety Report 5147397-5 (Version None)
Quarter: 2006Q4

REPORT INFORMATION
  Report Type: 
  Country: None (occurrence: None)
  Receive Date: 20061106
  Receipt Date: 20061027
  Transmission Date: 20070319
  Serious: Yes (Other)
  Sender: FDA-Public Use
  Company Number: 2006132055

PATIENT
  Age: 64 Year
  Sex: Female
  Weight: 58.9676 kg

DRUGS (4)
  1. ZOLOFT [Suspect]
     Indication: DEPRESSION
     Dosage: 50 MG (50 MG, 1 IN 1 D);
     Dates: start: 19980101, end: 20061026
  2. ZOLOFT [Suspect]
     Indication: OBSESSIVE-COMPULSIVE DISORDER
     Dosage: 50 MG (50 MG, 1 IN 1 D);
     Dates: start: 19980101, end: 20061026
  3. ZESTRIL [Concomitant]
  4. NEXIUM [Concomitant]

REACTIONS (7)
  - DRY SKIN [None]
  - ERYTHEMA [None]
  - HEADACHE [None]
  - RASH PAPULAR [None]
  - RASH VESICULAR [None]
  - SKIN INFECTION [None]
  - STAPHYLOCOCCAL INFECTION [None]
